FAERS Safety Report 6481593-X (Version None)
Quarter: 2009Q4

REPORT INFORMATION
  Report Type: 
  Country: None (occurrence: None)
  Receive Date: 20091208
  Receipt Date: 20091204
  Transmission Date: 20100525
  Serious: Yes (Life-Threatening)
  Sender: FDA-Public Use
  Company Number: IT-SANOFI-AVENTIS-2009SA006530

PATIENT
  Age: 57 Year
  Sex: Female

DRUGS (1)
  1. TAXOTERE [Suspect]
     Route: 042

REACTIONS (4)
  - CYANOSIS [None]
  - DRUG TOXICITY [None]
  - INCONTINENCE [None]
  - LOSS OF CONSCIOUSNESS [None]
